FAERS Safety Report 12316903 (Version 1)
Quarter: 2016Q2

REPORT INFORMATION
  Report Type: Spontaneous
  Country: US (occurrence: US)
  Receive Date: 20160429
  Receipt Date: 20160429
  Transmission Date: 20160815
  Serious: Yes (Other)
  Sender: FDA-Public Use
  Company Number: US-RECKITT BENCKISER HEALTHCARE INT LIMITED-RB-81884-2016

PATIENT
  Age: 48 Year
  Sex: Female
  Weight: 71 kg

DRUGS (4)
  1. ATIVAN [Concomitant]
     Active Substance: LORAZEPAM
     Indication: ANXIETY
     Dosage: 0.5 MG, BID AS NEEDED
     Route: 048
  2. CLEARASIL NOS [Suspect]
     Active Substance: BENZOYL PEROXIDE OR RESORCINOL AND SULFUR OR SALICYLIC ACID
     Indication: PRODUCT USED FOR UNKNOWN INDICATION
     Dosage: 1 DF, SINGLE
     Route: 061
     Dates: start: 20151230, end: 20151230
  3. SYNTHROID [Concomitant]
     Active Substance: LEVOTHYROXINE SODIUM
     Indication: PRODUCT USED FOR UNKNOWN INDICATION
     Dosage: 125 ?G, QD
     Route: 048
  4. ATIVAN [Concomitant]
     Active Substance: LORAZEPAM
     Indication: PANIC ATTACK

REACTIONS (5)
  - Pruritus [Recovered/Resolved]
  - Swelling face [Recovered/Resolved]
  - Dermatitis contact [Recovered/Resolved]
  - Chemical burn of skin [Recovered/Resolved]
  - Skin irritation [Recovered/Resolved]

NARRATIVE: CASE EVENT DATE: 20151230
